FAERS Safety Report 4731974-7 (Version None)
Quarter: 2005Q3

REPORT INFORMATION
  Report Type: 
  Country: None (occurrence: None)
  Receive Date: 20050725
  Receipt Date: 20041018
  Transmission Date: 20060218
  Serious: Yes (Hospitalization)
  Sender: FDA-Public Use
  Company Number: WAES 0410USA02757

PATIENT
  Age: 61 Year
  Sex: Female

DRUGS (5)
  1. VIOXX [Suspect]
     Indication: ARTHRITIS
     Dosage: 25 MG/DAILY/PO
     Route: 048
     Dates: start: 20040801, end: 20040904
  2. LOTREL [Concomitant]
  3. MIACALCIN [Concomitant]
  4. PRINIVIL [Concomitant]
  5. INDAPAMIDE [Concomitant]

REACTIONS (6)
  - DRUG HYPERSENSITIVITY [None]
  - HEART RATE INCREASED [None]
  - HYPERTENSION [None]
  - PARAESTHESIA [None]
  - RASH VESICULAR [None]
  - THROAT TIGHTNESS [None]
